FAERS Safety Report 10564676 (Version 3)
Quarter: 2015Q1

REPORT INFORMATION
  Report Type: Spontaneous
  Country: US (occurrence: US)
  Receive Date: 20141104
  Receipt Date: 20150129
  Transmission Date: 20150720
  Serious: Yes (Death, Hospitalization, Other)
  Sender: FDA-Public Use
  Company Number: US-009507513-1410USA012430

PATIENT
  Age: 79 Year
  Sex: Female
  Weight: 118 kg

DRUGS (4)
  1. INVANZ [Suspect]
     Active Substance: ERTAPENEM SODIUM
     Indication: ANTIBIOTIC THERAPY
     Dosage: UNK
     Dates: start: 201209
  2. LEVOFLOXACIN. [Suspect]
     Active Substance: LEVOFLOXACIN
     Indication: OSTEOMYELITIS
  3. LEVOFLOXACIN. [Suspect]
     Active Substance: LEVOFLOXACIN
     Indication: ANTIBIOTIC THERAPY
     Dosage: UNK
     Dates: start: 201209
  4. INVANZ [Suspect]
     Active Substance: ERTAPENEM SODIUM
     Indication: OSTEOMYELITIS

REACTIONS (5)
  - Drug ineffective [Unknown]
  - Urinary tract infection [Unknown]
  - Sepsis [Fatal]
  - Encephalopathy [Unknown]
  - Thrombophlebitis superficial [Unknown]

NARRATIVE: CASE EVENT DATE: 20120912
